FAERS Safety Report 9870066 (Version 2)
Quarter: 2014Q4

REPORT INFORMATION
  Report Type: Spontaneous
  Country: US (occurrence: US)
  Receive Date: 20140205
  Receipt Date: 20141110
  Transmission Date: 20150529
  Serious: Yes (Hospitalization, Other)
  Sender: FDA-Public Use
  Company Number: US-GLAXOSMITHKLINE-A1050245A

PATIENT
  Sex: Female

DRUGS (20)
  1. VALTREX [Suspect]
     Active Substance: VALACYCLOVIR HYDROCHLORIDE
     Indication: HERPES VIRUS INFECTION
     Dosage: 500 MG, BID
     Route: 048
     Dates: start: 20141029
  2. CORGARD [Concomitant]
     Active Substance: NADOLOL
  3. LYRICA [Suspect]
     Active Substance: PREGABALIN
     Indication: NEURALGIA
  4. VITAMIN B12 [Concomitant]
     Active Substance: CYANOCOBALAMIN
  5. VITAMIN B [Concomitant]
     Active Substance: VITAMIN B
  6. VITAMIN D [Concomitant]
     Active Substance: CHOLECALCIFEROL
  7. FLEXERIL [Suspect]
     Active Substance: CYCLOBENZAPRINE HYDROCHLORIDE
     Indication: PRODUCT USED FOR UNKNOWN INDICATION
     Route: 065
     Dates: start: 2008
  8. ESTRADIOL. [Concomitant]
     Active Substance: ESTRADIOL
  9. PRILOSEC [Concomitant]
     Active Substance: OMEPRAZOLE MAGNESIUM
  10. DOCOSAHEXAENOIC ACID [Concomitant]
  11. LORTAB [Suspect]
     Active Substance: ACETAMINOPHEN\HYDROCODONE BITARTRATE
     Indication: PAIN
     Route: 065
     Dates: start: 2008
  12. LOVASTATIN. [Concomitant]
     Active Substance: LOVASTATIN
  13. EVENING PRIMROSE [Concomitant]
  14. ALLOPURINOL. [Concomitant]
     Active Substance: ALLOPURINOL
  15. CELEBREX [Concomitant]
     Active Substance: CELECOXIB
  16. STEROID [Concomitant]
     Active Substance: UNSPECIFIED INGREDIENT
  17. LISINOPRIL. [Concomitant]
     Active Substance: LISINOPRIL
  18. KLOR-CON [Concomitant]
     Active Substance: POTASSIUM CHLORIDE
  19. HCTZ [Concomitant]
     Active Substance: HYDROCHLOROTHIAZIDE
  20. FISH OIL [Concomitant]
     Active Substance: FISH OIL

REACTIONS (7)
  - Hepatic failure [Recovered/Resolved]
  - Pruritus [Not Recovered/Not Resolved]
  - Herpes virus infection [Unknown]
  - Bile duct stone [Recovered/Resolved]
  - Hyperhidrosis [Unknown]
  - Nausea [Unknown]
  - Endoscopic retrograde cholangiopancreatography [Unknown]

NARRATIVE: CASE EVENT DATE: 2014
